FAERS Safety Report 21202345 (Version 1)
Quarter: 2022Q3

REPORT INFORMATION
  Report Type: Spontaneous
  Country: US (occurrence: US)
  Receive Date: 20220811
  Receipt Date: 20220811
  Transmission Date: 20221027
  Serious: No
  Sender: FDA-Public Use
  Company Number: US-OTSUKA-2022_005737

PATIENT
  Sex: Male
  Weight: 108.86 kg

DRUGS (1)
  1. REXULTI [Suspect]
     Active Substance: BREXPIPRAZOLE
     Indication: Depression
     Dosage: 1 MG, QD (EVERY MORNING)
     Route: 048
     Dates: start: 20220201

REACTIONS (1)
  - Back disorder [Unknown]
